FAERS Safety Report 6407980-3 (Version None)
Quarter: 2010Q1

REPORT INFORMATION
  Report Type: 
  Country: None (occurrence: None)
  Receive Date: 20091020
  Receipt Date: 20091014
  Transmission Date: 20100710
  Serious: Yes (Other)
  Sender: FDA-Public Use
  Company Number: US-JNJCH-2009027352

PATIENT
  Sex: Male
  Weight: 13.6 kg

DRUGS (1)
  1. CHILDREN'S BENADRYL ALLERGY [Suspect]
     Indication: SLEEP DISORDER
     Dosage: TEXT:UNKNOWN 2X DAILY
     Route: 048

REACTIONS (2)
  - DRUG LEVEL ABOVE THERAPEUTIC [None]
  - OFF LABEL USE [None]
